FAERS Safety Report 4869459-X (Version None)
Quarter: 2005Q4

REPORT INFORMATION
  Report Type: 
  Country: None (occurrence: None)
  Receive Date: 20051230
  Receipt Date: 20011015
  Transmission Date: 20060501
  Serious: Yes (Life-Threatening, Hospitalization, Disabling, Other)
  Sender: FDA-Public Use
  Company Number: US-MERCK-01101993

PATIENT
  Age: 64 Year
  Sex: Male
  Weight: 90 kg

DRUGS (13)
  1. VIOXX [Suspect]
     Indication: ARTHRITIS
     Route: 048
     Dates: start: 20010329, end: 20010818
  2. ATACAND [Concomitant]
     Indication: HYPERTENSION
     Route: 065
     Dates: start: 20000101, end: 20010419
  3. LOPID [Concomitant]
     Indication: HYPERCHOLESTEROLAEMIA
     Route: 065
     Dates: start: 20010419, end: 20010801
  4. ASPIRIN [Concomitant]
     Indication: PROPHYLAXIS
     Route: 065
     Dates: start: 20010419, end: 20010101
  5. OSTEO-BI-FLEX [Concomitant]
     Indication: ARTHRALGIA
     Route: 065
     Dates: start: 20010419
  6. SUDAFED 12 HOUR [Concomitant]
     Indication: UPPER RESPIRATORY TRACT INFECTION
     Route: 065
     Dates: end: 20010801
  7. BENADRYL [Concomitant]
     Indication: UPPER RESPIRATORY TRACT INFECTION
     Route: 065
     Dates: end: 20010801
  8. ATENOLOL [Concomitant]
     Indication: HYPERTENSION
     Route: 065
     Dates: start: 20010101
  9. ATENOLOL [Concomitant]
     Route: 065
     Dates: start: 19740101, end: 20010101
  10. HYDRODIURIL [Concomitant]
     Indication: HYPERTENSION
     Route: 065
     Dates: start: 19740101, end: 20010419
  11. ATACAND HCT [Concomitant]
     Route: 065
     Dates: start: 20010419, end: 20010801
  12. GASTROINTESTINAL PREPARATIONS (UNSPECIFIED) [Concomitant]
     Route: 065
  13. VIOXX [Suspect]
     Indication: BACK PAIN
     Route: 048
     Dates: start: 20010329, end: 20010818

REACTIONS (6)
  - CHEST PAIN [None]
  - DEPRESSION [None]
  - DIZZINESS [None]
  - EMBOLIC STROKE [None]
  - NEOPLASM [None]
  - SINOBRONCHITIS [None]
